FAERS Safety Report 6534687-4 (Version None)
Quarter: 2010Q1

REPORT INFORMATION
  Report Type: 
  Country: None (occurrence: None)
  Receive Date: 20100112
  Receipt Date: 20100105
  Transmission Date: 20100710
  Serious: Yes (Other)
  Sender: FDA-Public Use
  Company Number: US-MERCK-0908USA03738

PATIENT
  Age: 73 Year
  Sex: Female
  Weight: 53 kg

DRUGS (8)
  1. FOSAMAX [Suspect]
     Indication: OSTEOPOROSIS
     Route: 048
     Dates: end: 20060201
  2. FOSAMAX [Suspect]
     Route: 048
     Dates: start: 19970101
  3. FOSAMAX [Suspect]
     Indication: OSTEOPENIA
     Route: 048
     Dates: end: 20060201
  4. FOSAMAX [Suspect]
     Route: 048
     Dates: start: 19970101
  5. ATENOLOL [Concomitant]
     Indication: HYPERTENSION
     Route: 065
  6. ZESTRIL [Concomitant]
     Indication: HYPERTENSION
     Route: 065
  7. AMITRIPTYLINE HYDROCHLORIDE [Concomitant]
     Indication: SLEEP DISORDER
     Route: 065
  8. AMITRIPTYLINE HYDROCHLORIDE [Concomitant]
     Indication: DEPRESSION
     Route: 065

REACTIONS (33)
  - APHTHOUS STOMATITIS [None]
  - BRONCHITIS [None]
  - CANDIDIASIS [None]
  - CERUMEN IMPACTION [None]
  - CHRONIC OBSTRUCTIVE PULMONARY DISEASE [None]
  - DECREASED APPETITE [None]
  - DENTAL CARIES [None]
  - DENTAL FISTULA [None]
  - DENTAL NECROSIS [None]
  - FATIGUE [None]
  - GASTROOESOPHAGEAL REFLUX DISEASE [None]
  - GINGIVAL DISORDER [None]
  - GINGIVAL INFECTION [None]
  - HYPERLIPIDAEMIA [None]
  - IMPAIRED HEALING [None]
  - IRRITABLE BOWEL SYNDROME [None]
  - MENOPAUSAL SYMPTOMS [None]
  - NASOPHARYNGITIS [None]
  - OEDEMA MOUTH [None]
  - ORAL DISORDER [None]
  - ORAL INFECTION [None]
  - OSTEOMYELITIS [None]
  - OSTEONECROSIS [None]
  - OSTEOPENIA [None]
  - PERIODONTAL DISEASE [None]
  - SEBORRHOEIC KERATOSIS [None]
  - TACHYCARDIA [None]
  - TOOTH ABSCESS [None]
  - TOOTH DISORDER [None]
  - TOOTH FRACTURE [None]
  - TOOTH INFECTION [None]
  - URTICARIA [None]
  - VERTIGO [None]
